FAERS Safety Report 5336025-1 (Version None)
Quarter: 2007Q2

REPORT INFORMATION
  Report Type: 
  Country: None (occurrence: None)
  Receive Date: 20070302
  Receipt Date: 20061109
  Transmission Date: 20071010
  Serious: No
  Sender: FDA-Public Use
  Company Number: PHEH200613455

PATIENT
  Age: 72 Year
  Sex: Female
  Weight: 77.6 kg

DRUGS (8)
  1. ENABLEX [Suspect]
     Indication: HYPERTONIC BLADDER
     Dosage: 7.5 QD
     Dates: start: 20060911, end: 20060912
  2. ENABLEX [Suspect]
     Indication: HYPERTONIC BLADDER
     Dosage: 7.5 QD
     Dates: start: 20061015
  3. ANTIDEPRESSANTS (NO INGREDIGENTS/SUBSTANCES) [Concomitant]
  4. PRILOSEC [Concomitant]
  5. LASIX [Concomitant]
  6. DIOVAN [Concomitant]
  7. ZOLOFT [Concomitant]
  8. THYROID TAB [Concomitant]

REACTIONS (2)
  - AGGRESSION [None]
  - ANGER [None]
